FAERS Safety Report 21590387 (Version 2)
Quarter: 2023Q1

REPORT INFORMATION
  Report Type: Spontaneous
  Country: PT (occurrence: PT)
  Receive Date: 20221114
  Receipt Date: 20230120
  Transmission Date: 20230418
  Serious: Yes (Life-Threatening, Hospitalization, Other)
  Sender: FDA-Public Use
  Company Number: PT-MLMSERVICE-20221031-3891835-1

PATIENT
  Age: 63 Year
  Sex: Female

DRUGS (4)
  1. ROCURONIUM [Suspect]
     Active Substance: ROCURONIUM BROMIDE
     Indication: Neuromuscular blockade
     Route: 042
  2. PROPOFOL [Suspect]
     Active Substance: PROPOFOL
     Indication: General anaesthesia
     Route: 042
  3. REMIFENTANIL [Suspect]
     Active Substance: REMIFENTANIL
     Indication: General anaesthesia
     Dosage: EFFECT-SITE CONCENTRATION 2NG/ ML
     Route: 042
  4. INSULIN NOS [Concomitant]
     Active Substance: INSULIN NOS
     Indication: Type 2 diabetes mellitus
     Dosage: UNKNOWN
     Route: 065

REACTIONS (8)
  - Hypokinesia [Recovered/Resolved]
  - Hyperlactacidaemia [Recovered/Resolved]
  - Cardio-respiratory arrest [Recovered/Resolved]
  - Cardiac failure [Recovered/Resolved]
  - Pleural effusion [Recovered/Resolved]
  - Hypercapnia [Recovered/Resolved]
  - Cardiac arrest [Recovered/Resolved]
  - Acidosis [Recovered/Resolved]
